FAERS Safety Report 4736786-6 (Version None)
Quarter: 2005Q3

REPORT INFORMATION
  Report Type: 
  Country: None (occurrence: None)
  Receive Date: 20050803
  Receipt Date: 20050726
  Transmission Date: 20060218
  Serious: Yes (Hospitalization)
  Sender: FDA-Public Use
  Company Number: 163-20785-05060332

PATIENT
  Age: 80 Year
  Sex: Male

DRUGS (6)
  1. THALOMID [Suspect]
     Indication: MULTIPLE MYELOMA
     Dosage: 200 MG, DAILY, ORAL
     Route: 048
     Dates: start: 20050523
  2. DECADRON [Suspect]
     Indication: MULTIPLE MYELOMA
     Dosage: 40MG ON DAYS 1-4, 9-12, 17-21 OF CYCLE
     Dates: start: 20050523
  3. PROCRIT [Concomitant]
  4. ATROVENT [Concomitant]
  5. ALBUTEROL [Concomitant]
  6. OMEPRAZOLE [Concomitant]

REACTIONS (2)
  - ANAEMIA [None]
  - RENAL FAILURE [None]
